FAERS Safety Report 5025159-7 (Version None)
Quarter: 2006Q2

REPORT INFORMATION
  Report Type: 
  Country: None (occurrence: None)
  Receive Date: 20060609
  Receipt Date: 20060609
  Transmission Date: 20061013
  Serious: Yes (Other)
  Sender: FDA-Public Use
  Company Number: None

PATIENT
  Age: 26 Year
  Sex: Female
  Weight: 65.7716 kg

DRUGS (1)
  1. SEASONALE [Suspect]
     Indication: CONTRACEPTION
     Dosage: ONCE DAILY PO
     Route: 048
     Dates: start: 20060508, end: 20060608

REACTIONS (7)
  - ACNE [None]
  - ANXIETY [None]
  - DEPRESSION [None]
  - DRY SKIN [None]
  - INSOMNIA [None]
  - LOSS OF LIBIDO [None]
  - MOOD ALTERED [None]
